FAERS Safety Report 6368049-X (Version None)
Quarter: 2009Q3

REPORT INFORMATION
  Report Type: 
  Country: None (occurrence: None)
  Receive Date: 20090922
  Receipt Date: 20090915
  Transmission Date: 20100115
  Serious: Yes (Other)
  Sender: FDA-Public Use
  Company Number: US-JNJFOC-20090604707

PATIENT
  Sex: Female
  Weight: 32.66 kg

DRUGS (2)
  1. RISPERDAL [Suspect]
     Route: 048
  2. RISPERDAL [Suspect]
     Indication: TOURETTE'S DISORDER
     Route: 048

REACTIONS (7)
  - INCORRECT DOSE ADMINISTERED [None]
  - MUSCULOSKELETAL STIFFNESS [None]
  - OFF LABEL USE [None]
  - PHARYNGEAL DISORDER [None]
  - PRODUCT QUALITY ISSUE [None]
  - TIC [None]
  - WRONG TECHNIQUE IN DRUG USAGE PROCESS [None]
